FAERS Safety Report 9801394 (Version 1)
Quarter: 2014Q1

REPORT INFORMATION
  Report Type: Spontaneous
  Country: US (occurrence: US)
  Receive Date: 20140107
  Receipt Date: 20140107
  Transmission Date: 20141002
  Serious: Yes (Death)
  Sender: FDA-Public Use
  Company Number: US-UCBSA-108216

PATIENT
  Age: 58 Year
  Sex: Female

DRUGS (4)
  1. ALPRAZOLAM [Suspect]
  2. MORPHINE [Suspect]
  3. OXYCODONE [Suspect]
  4. CYCLOBENZAPRINE [Suspect]

REACTIONS (1)
  - Intentional drug misuse [Fatal]
